FAERS Safety Report 4432203-4 (Version None)
Quarter: 2004Q3

REPORT INFORMATION
  Report Type: 
  Country: None (occurrence: None)
  Receive Date: 20040820
  Receipt Date: 20040804
  Transmission Date: 20050211
  Serious: Yes (Other)
  Sender: FDA-Public Use
  Company Number: 04UK 0186

PATIENT
  Age: 61 Year
  Sex: Male

DRUGS (6)
  1. AGGRASTAT [Suspect]
     Indication: ANGINA UNSTABLE
     Dosage: 18 ML/LX
     Dates: start: 20040524, end: 20040525
  2. TIROFIBAN HYDROCHLORIDE [Suspect]
     Indication: ANGINA UNSTABLE
     Dosage: 9 ML
     Dates: start: 20040524, end: 20040525
  3. ACETYLSALICYLIC ACID [Concomitant]
  4. ATORVASTATIN CALCIUM [Concomitant]
  5. BISOPROLOL FUMARATE [Concomitant]
  6. CLOPIDOGREL [Concomitant]

REACTIONS (3)
  - HEPATIC FAILURE [None]
  - MALAISE [None]
  - RENAL FAILURE [None]
